FAERS Safety Report 15552595 (Version 1)
Quarter: 2018Q4

REPORT INFORMATION
  Report Type: Spontaneous
  Country: US (occurrence: US)
  Receive Date: 20181025
  Receipt Date: 20181025
  Transmission Date: 20190205
  Serious: Yes (Other)
  Sender: FDA-Public Use
  Company Number: US-TEVA-2018-US-966558

PATIENT
  Age: 60 Year
  Sex: Female

DRUGS (4)
  1. PROPYLTHIOURACIL. [Suspect]
     Active Substance: PROPYLTHIOURACIL
     Indication: ENDOCRINE OPHTHALMOPATHY
     Dosage: INCREASED TO 300MG THRICE DAILY
     Route: 065
  2. PROPYLTHIOURACIL. [Suspect]
     Active Substance: PROPYLTHIOURACIL
     Indication: ENDOCRINE OPHTHALMOPATHY
     Route: 065
  3. PROPRANOLOL [Suspect]
     Active Substance: PROPRANOLOL HYDROCHLORIDE
     Indication: ATRIAL FIBRILLATION
     Route: 065
  4. POTASSIUM IODIDE. [Suspect]
     Active Substance: POTASSIUM IODIDE
     Indication: ENDOCRINE OPHTHALMOPATHY
     Dosage: 3 DROPS THRICE DAILY; LATER DOSE WAS INCREASED
     Route: 065

REACTIONS (2)
  - Drug ineffective [Unknown]
  - Treatment failure [Unknown]
